FAERS Safety Report 8784363 (Version 1)
Quarter: 2012Q4

REPORT INFORMATION
  Report Type: 
  Country: GB (occurrence: GB)
  Receive Date: 20120913
  Receipt Date: 20120913
  Transmission Date: 20130627
  Serious: Yes (Other)
  Sender: FDA-Public Use
  Company Number: GB-UCBSA-065306

PATIENT
  Sex: Female

DRUGS (5)
  1. NEUPRO [Suspect]
     Dates: start: 201112
  2. CALCIUM [Concomitant]
  3. MADOPAR [Concomitant]
  4. ALENDRONIC ACID [Concomitant]
  5. AMITRIPTYLINE [Concomitant]

REACTIONS (2)
  - Cataract [Unknown]
  - Vision blurred [Unknown]
